FAERS Safety Report 4284381-8 (Version None)
Quarter: 2004Q1

REPORT INFORMATION
  Report Type: 
  Country: None (occurrence: None)
  Receive Date: 20040130
  Receipt Date: 20040107
  Transmission Date: 20041129
  Serious: Yes (Hospitalization)
  Sender: FDA-Public Use
  Company Number: USA040155983

PATIENT
  Age: 60 Year
  Sex: Female
  Weight: 68 kg

DRUGS (17)
  1. ZYPREXA [Suspect]
     Indication: BIPOLAR I DISORDER
     Dosage: 20 MG/AT BEDTIME
     Dates: start: 20030101, end: 20031101
  2. AVANDIA [Concomitant]
  3. LOPRESSOR [Concomitant]
  4. ACCOLATE [Concomitant]
  5. LASIX [Concomitant]
  6. SYNTHROID [Concomitant]
  7. LANOXIN [Concomitant]
  8. ENALAPRIL [Concomitant]
  9. ASPIRIN [Concomitant]
  10. NITROGLYCERIN [Concomitant]
  11. LIPITOR [Concomitant]
  12. TRILEPTAL [Concomitant]
  13. AMBIEN [Concomitant]
  14. DEPAKOTE [Concomitant]
  15. RISPERDAL [Concomitant]
  16. COGENTIN [Concomitant]
  17. ZOLOFT [Concomitant]

REACTIONS (4)
  - BIPOLAR DISORDER [None]
  - CONDITION AGGRAVATED [None]
  - PANIC ATTACK [None]
  - WEIGHT INCREASED [None]
